FAERS Safety Report 10782741 (Version 1)
Quarter: 2015Q1

REPORT INFORMATION
  Report Type: Spontaneous
  Country: US (occurrence: US)
  Receive Date: 20150210
  Receipt Date: 20150210
  Transmission Date: 20150721
  Serious: No
  Sender: FDA-Public Use
  Company Number: US-GLAXOSMITHKLINE-A1004905A

PATIENT

DRUGS (4)
  1. PREDNISONE. [Concomitant]
     Active Substance: PREDNISONE
  2. ISRADIPINE CAPSULE [Suspect]
     Active Substance: ISRADIPINE
     Indication: HYPERTENSION
     Route: 048
     Dates: start: 2011, end: 2011
  3. SANDIMMUNE [Concomitant]
     Active Substance: CYCLOSPORINE
  4. ALLOPURINOL. [Concomitant]
     Active Substance: ALLOPURINOL

REACTIONS (1)
  - Heart rate increased [Recovered/Resolved]

NARRATIVE: CASE EVENT DATE: 2011
